FAERS Safety Report 20529848 (Version 1)
Quarter: 2022Q1

REPORT INFORMATION
  Report Type: Other
  Country: FR (occurrence: FR)
  Receive Date: 20220301
  Receipt Date: 20220301
  Transmission Date: 20220423
  Serious: Yes (Death, Hospitalization, Other)
  Sender: FDA-Public Use
  Company Number: FR-Intas Spain-000450

PATIENT

DRUGS (6)
  1. ATORVASTATIN [Interacting]
     Active Substance: ATORVASTATIN
     Indication: Product used for unknown indication
     Dosage: UNK
     Route: 065
  2. AMLODIPINE [Interacting]
     Active Substance: AMLODIPINE BESYLATE
     Indication: Product used for unknown indication
     Dosage: UNK
     Route: 065
  3. RAMIPRIL [Interacting]
     Active Substance: RAMIPRIL
     Indication: Product used for unknown indication
     Dosage: UNK
     Route: 065
  4. BISOPROLOL [Interacting]
     Active Substance: BISOPROLOL
     Indication: Product used for unknown indication
     Dosage: UNK
     Route: 065
  5. EPLERENONE [Interacting]
     Active Substance: EPLERENONE
     Indication: Product used for unknown indication
     Dosage: UNK
     Route: 065
  6. APIXABAN [Interacting]
     Active Substance: APIXABAN
     Indication: Product used for unknown indication
     Dosage: UNK
     Route: 048

REACTIONS (6)
  - Cardiogenic shock [Fatal]
  - Suicide attempt [Unknown]
  - Drug interaction [Unknown]
  - Renal failure [Unknown]
  - Toxicity to various agents [Unknown]
  - Overdose [Unknown]
